FAERS Safety Report 18344273 (Version 1)
Quarter: 2020Q4

REPORT INFORMATION
  Report Type: Spontaneous
  Country: US (occurrence: US)
  Receive Date: 20201005
  Receipt Date: 20201005
  Transmission Date: 20210114
  Serious: Yes (Other)
  Sender: FDA-Public Use
  Company Number: None

PATIENT
  Sex: Female

DRUGS (1)
  1. ICY HOT WITH LIDOCAINE [Suspect]
     Active Substance: LIDOCAINE\MENTHOL
     Dates: start: 20201001, end: 20201003

REACTIONS (1)
  - Application site pain [None]

NARRATIVE: CASE EVENT DATE: 20201003
